FAERS Safety Report 8609407-X (Version None)
Quarter: 2012Q3

REPORT INFORMATION
  Report Type: 
  Country: None (occurrence: None)
  Receive Date: 20120821
  Receipt Date: 20120808
  Transmission Date: 20120928
  Serious: No
  Sender: FDA-Public Use
  Company Number: US-ASTRAZENECA-2011SE43071

PATIENT
  Age: 84 Year
  Sex: Female

DRUGS (6)
  1. ELIDEL [Concomitant]
     Dosage: 1%
  2. VERAPAMIL [Concomitant]
  3. SYNTHROID [Concomitant]
  4. WARFARIN SODIUM [Concomitant]
  5. CEPHALEXIN [Concomitant]
  6. ARIMIDEX [Suspect]
     Route: 048

REACTIONS (4)
  - INSOMNIA [None]
  - ARTHRALGIA [None]
  - ADVERSE EVENT [None]
  - DEPRESSION [None]
